FAERS Safety Report 8812660 (Version 1)
Quarter: 2012Q4

REPORT INFORMATION
  Report Type: 
  Country: UG (occurrence: UG)
  Receive Date: 20120927
  Receipt Date: 20120927
  Transmission Date: 20130627
  Serious: Yes (Death, Hospitalization)
  Sender: FDA-Public Use
  Company Number: PHHY2012UG083021

PATIENT
  Age: 35 Year
  Sex: Male

DRUGS (11)
  1. FLUCONAZOLE [Suspect]
     Dosage: 400 mg, per day
  2. FLUCONAZOLE [Suspect]
     Dosage: 200 mg, daily
  3. FLUCONAZOLE [Suspect]
     Dosage: 800 mg, per day
  4. FLUCONAZOLE [Suspect]
     Dosage: 400 mg, daily
  5. SULFAMETHOXAZOLE W/TRIMETHOPRIM [Concomitant]
     Indication: PROPHYLAXIS
  6. ZIDOVUDINE [Concomitant]
  7. LAMIVUDINE [Concomitant]
  8. EFAVIRENZ [Concomitant]
  9. PREDNISOLONE [Concomitant]
     Dosage: 60 mg, per day
  10. PREDNISOLONE [Concomitant]
     Dosage: 10 mg, QW
  11. ALBENDAZOLE [Concomitant]
     Dosage: 400 mg, BID

REACTIONS (8)
  - Cryptococcosis [Fatal]
  - Meningitis cryptococcal [Unknown]
  - Headache [Unknown]
  - Malaise [Unknown]
  - Decreased appetite [Unknown]
  - Weight decreased [Unknown]
  - Lethargy [Unknown]
  - Drug resistance [Unknown]
